FAERS Safety Report 14696330 (Version 1)
Quarter: 2018Q1

REPORT INFORMATION
  Report Type: Report from Study
  Country: None (occurrence: US)
  Receive Date: 20180329
  Receipt Date: 20180329
  Transmission Date: 20180509
  Serious: Yes (Other)
  Sender: FDA-Public Use
  Company Number: US-ABBVIE-18K-163-2235556-00

PATIENT
  Age: 64 Year
  Sex: Female
  Weight: 81.72 kg

DRUGS (3)
  1. HUMIRA [Suspect]
     Active Substance: ADALIMUMAB
     Route: 058
     Dates: start: 20171020
  2. TACLONEX [Concomitant]
     Active Substance: BETAMETHASONE DIPROPIONATE\CALCIPOTRIENE\CALCIPOTRIENE HYDRATE
     Indication: PSORIASIS
  3. HUMIRA [Suspect]
     Active Substance: ADALIMUMAB
     Indication: PSORIASIS
     Route: 058
     Dates: start: 20170721, end: 20171006

REACTIONS (6)
  - Pain in extremity [Recovering/Resolving]
  - Pain of skin [Unknown]
  - Weight increased [Not Recovered/Not Resolved]
  - Foot deformity [Recovering/Resolving]
  - Psoriasis [Recovered/Resolved with Sequelae]
  - Stress [Recovered/Resolved with Sequelae]

NARRATIVE: CASE EVENT DATE: 2017
